FAERS Safety Report 23462142 (Version 1)
Quarter: 2024Q1

REPORT INFORMATION
  Report Type: Spontaneous
  Country: US (occurrence: US)
  Receive Date: 20240131
  Receipt Date: 20240131
  Transmission Date: 20240410
  Serious: Yes (Hospitalization, Other)
  Sender: FDA-Public Use
  Company Number: US-APOTEX-2024AP001642

PATIENT
  Age: 17 Year
  Sex: Male

DRUGS (1)
  1. BICALUTAMIDE [Suspect]
     Active Substance: BICALUTAMIDE
     Indication: Gender reassignment therapy
     Dosage: UNK
     Route: 065

REACTIONS (2)
  - Hepatotoxicity [Recovering/Resolving]
  - Hypertransaminasaemia [Unknown]
